FAERS Safety Report 8520343-X (Version None)
Quarter: 2012Q3

REPORT INFORMATION
  Report Type: 
  Country: None (occurrence: None)
  Receive Date: 20120719
  Receipt Date: 20120712
  Transmission Date: 20120928
  Serious: Yes (Hospitalization, Other)
  Sender: FDA-Public Use
  Company Number: TR-ROXANE LABORATORIES, INC.-2012-RO-01540RO

PATIENT
  Age: 78 Year
  Sex: Female

DRUGS (2)
  1. PREDNISONE [Suspect]
     Indication: TEMPORAL ARTERITIS
  2. DICLOFENAC SODIUM [Suspect]
     Dosage: 100 MG

REACTIONS (2)
  - DIVERTICULAR PERFORATION [None]
  - INTESTINAL ULCER [None]
